FAERS Safety Report 4776994-1 (Version None)
Quarter: 2005Q3

REPORT INFORMATION
  Report Type: 
  Country: None (occurrence: None)
  Receive Date: 20050923
  Receipt Date: 20050914
  Transmission Date: 20060218
  Serious: Yes (Other)
  Sender: FDA-Public Use
  Company Number: US-GLAXOSMITHKLINE-A0575216A

PATIENT

DRUGS (1)
  1. ARIXTRA [Suspect]
     Dates: start: 20050901

REACTIONS (1)
  - PULMONARY EMBOLISM [None]
